FAERS Safety Report 10311040 (Version 3)
Quarter: 2014Q4

REPORT INFORMATION
  Report Type: Spontaneous
  Country: US (occurrence: US)
  Receive Date: 20140717
  Receipt Date: 20141104
  Transmission Date: 20150528
  Serious: Yes (Other)
  Sender: FDA-Public Use
  Company Number: US-PFIZER INC-2014196902

PATIENT
  Age: 67 Year
  Sex: Female

DRUGS (1)
  1. AROMASIN [Suspect]
     Active Substance: EXEMESTANE
     Dosage: 25 MG, DAILY (1 TAB, PO, DAILY AS DIRECTED)
     Route: 048

REACTIONS (3)
  - Memory impairment [Unknown]
  - Alopecia [Unknown]
  - Brain injury [Unknown]
